FAERS Safety Report 24132916 (Version 2)
Quarter: 2024Q3

REPORT INFORMATION
  Report Type: Spontaneous
  Country: US (occurrence: US)
  Receive Date: 20240724
  Receipt Date: 20240819
  Transmission Date: 20241017
  Serious: Yes (Hospitalization)
  Sender: TEVA
  Company Number: US-TEVA-VS-3222396

PATIENT
  Age: 70 Year
  Sex: Male

DRUGS (1)
  1. MINOCYCLINE [Suspect]
     Active Substance: MINOCYCLINE HYDROCHLORIDE
     Indication: Cellulitis
     Route: 065

REACTIONS (2)
  - Pulmonary toxicity [Recovering/Resolving]
  - Eosinophilia [Recovered/Resolved]
